FAERS Safety Report 9159219 (Version 1)
Quarter: 2013Q1

REPORT INFORMATION
  Report Type: Spontaneous
  Country: US (occurrence: None)
  Receive Date: 20130311
  Receipt Date: 20130311
  Transmission Date: 20140127
  Serious: Yes (Death)
  Sender: FDA-Public Use
  Company Number: ACO_34662_2013

PATIENT
  Age: 63 Year
  Sex: Female

DRUGS (1)
  1. AMPYRA (DALFAMPRIDINE) TABLET, 10MG [Suspect]
     Indication: PRODUCT USED FOR UNKNOWN INDICATION
     Dates: start: 20120306, end: 20130201

REACTIONS (2)
  - Myocardial infarction [None]
  - Coronary artery stenosis [None]
